FAERS Safety Report 15216955 (Version 2)
Quarter: 2018Q3

REPORT INFORMATION
  Report Type: Not Available
  Country: US (occurrence: US)
  Receive Date: 20180730
  Receipt Date: 20180814
  Transmission Date: 20181010
  Serious: Yes (Hospitalization)
  Sender: FDA-Public Use
  Company Number: US-NEUROCRINE BIOSCIENCES INC.-2018NBI02187

PATIENT
  Sex: Female

DRUGS (26)
  1. TOPIRAMATE. [Concomitant]
     Active Substance: TOPIRAMATE
     Route: 048
  2. TRINTELLIX [Concomitant]
     Active Substance: VORTIOXETINE HYDROBROMIDE
  3. OXCARBAZEPINE. [Concomitant]
     Active Substance: OXCARBAZEPINE
  4. LORAZEPAM. [Concomitant]
     Active Substance: LORAZEPAM
  5. POTASSIUM [Concomitant]
     Active Substance: POTASSIUM
  6. TRAZODONE [Concomitant]
     Active Substance: TRAZODONE HYDROCHLORIDE
  7. TRIHEXYPHENIDYL [Concomitant]
     Active Substance: TRIHEXYPHENIDYL
  8. INGREZZA [Suspect]
     Active Substance: VALBENAZINE
     Route: 048
     Dates: start: 20171028
  9. FUROSEMIDE. [Concomitant]
     Active Substance: FUROSEMIDE
  10. LEVOTHYROXINE. [Concomitant]
     Active Substance: LEVOTHYROXINE
     Dosage: 50 MCG 1 TABLET EVERY MORNING
  11. XARELTO [Concomitant]
     Active Substance: RIVAROXABAN
     Dosage: EVERY EVENING
  12. TOVIAZ [Concomitant]
     Active Substance: FESOTERODINE FUMARATE
     Route: 048
  13. OLOPATADINE. [Concomitant]
     Active Substance: OLOPATADINE
     Dosage: 1 DROP BOTH EYES EVERY MORNING
  14. ZOFRAN [Concomitant]
     Active Substance: ONDANSETRON HYDROCHLORIDE
  15. TIZANIDINE. [Concomitant]
     Active Substance: TIZANIDINE
     Indication: MUSCLE SPASMS
  16. INGREZZA [Suspect]
     Active Substance: VALBENAZINE
     Dosage: 40MG THREE CAPSULES BY MOUTH EVERY EVENING
     Route: 048
  17. NITROSTAT [Concomitant]
     Active Substance: NITROGLYCERIN
     Route: 060
  18. HYDROXYZINE [Concomitant]
     Active Substance: HYDROXYZINE HYDROCHLORIDE
  19. INGREZZA [Suspect]
     Active Substance: VALBENAZINE
     Indication: EXTRAPYRAMIDAL DISORDER
     Route: 048
     Dates: start: 20171021, end: 20171027
  20. LIFITEGRAST [Concomitant]
     Active Substance: LIFITEGRAST
     Dosage: 1 DROP IN BOTH EYES TWICE DAILY
  21. LAMOTRIGINE. [Concomitant]
     Active Substance: LAMOTRIGINE
  22. PROMETHAZINE [Concomitant]
     Active Substance: PROMETHAZINE\PROMETHAZINE HYDROCHLORIDE
  23. DIPHENHYDRAMINE. [Concomitant]
     Active Substance: DIPHENHYDRAMINE
     Indication: SLEEP DISORDER
     Dosage: 25 MG FOUR TABLETS BY MOUTH EVERY EVENING
     Route: 048
  24. IMODIUM [Concomitant]
     Active Substance: LOPERAMIDE HYDROCHLORIDE
  25. SUMATRIPTAN. [Concomitant]
     Active Substance: SUMATRIPTAN
     Indication: MIGRAINE
  26. SINGULAIR [Concomitant]
     Active Substance: MONTELUKAST SODIUM
     Dosage: 10 MG EVERY EVENING

REACTIONS (5)
  - Diarrhoea [Unknown]
  - Bipolar disorder [Unknown]
  - Hypokalaemia [Recovered/Resolved]
  - Anxiety [Unknown]
  - Off label use [Unknown]
